FAERS Safety Report 6172784-6 (Version None)
Quarter: 2009Q2

REPORT INFORMATION
  Report Type: 
  Country: None (occurrence: None)
  Receive Date: 20090430
  Receipt Date: 20090424
  Transmission Date: 20091009
  Serious: Yes (Hospitalization)
  Sender: FDA-Public Use
  Company Number: JP-BRISTOL-MYERS SQUIBB COMPANY-14513667

PATIENT
  Age: 88 Year
  Sex: Male

DRUGS (2)
  1. PARAPLATIN [Suspect]
     Indication: HEAD AND NECK CANCER
     Route: 041
  2. UFT [Concomitant]
     Route: 048

REACTIONS (1)
  - PNEUMONIA ASPIRATION [None]
